FAERS Safety Report 8178039-2 (Version None)
Quarter: 2012Q1

REPORT INFORMATION
  Report Type: 
  Country: None (occurrence: None)
  Receive Date: 20120301
  Receipt Date: 20120220
  Transmission Date: 20120608
  Serious: Yes (Hospitalization)
  Sender: FDA-Public Use
  Company Number: US-BRISTOL-MYERS SQUIBB COMPANY-16408916

PATIENT
  Age: 68 Year
  Sex: Male

DRUGS (5)
  1. PACLITAXEL [Suspect]
     Indication: LARYNGEAL CANCER
  2. CARBIDOPA + LEVODOPA [Concomitant]
     Indication: PARKINSON'S DISEASE
  3. ENTACAPONE [Concomitant]
     Indication: PARKINSON'S DISEASE
  4. PRAMIPEXOLE DIHYDROCHLORIDE [Interacting]
     Indication: PARKINSON'S DISEASE
  5. CARBOPLATIN [Concomitant]
     Dosage: 1 DF: AUC OF 1.5

REACTIONS (3)
  - DRUG INTERACTION [None]
  - ENCEPHALOPATHY [None]
  - TRANSIENT PSYCHOSIS [None]
